FAERS Safety Report 15979390 (Version 1)
Quarter: 2019Q1

REPORT INFORMATION
  Report Type: Spontaneous
  Country: US (occurrence: US)
  Receive Date: 20190217
  Receipt Date: 20190217
  Transmission Date: 20190418
  Serious: Yes (Disabling)
  Sender: FDA-Public Use
  Company Number: None

PATIENT
  Age: 64 Year
  Sex: Female
  Weight: 120.6 kg

DRUGS (6)
  1. GLIMEPIRIDE. [Concomitant]
     Active Substance: GLIMEPIRIDE
  2. SALMON OIL [Concomitant]
     Active Substance: FISH OIL
  3. VITAMIN D3 [Concomitant]
     Active Substance: CHOLECALCIFEROL
  4. LEVOTHYROXINE 0.025MG (25 MCG) ON THE PILL: SIDE 1 JSP / SIDE 2 513 [Suspect]
     Active Substance: LEVOTHYROXINE SODIUM
     Indication: THYROID DISORDER
     Dosage: ?          QUANTITY:1 TABLET(S);?
     Route: 048
     Dates: start: 20190110, end: 20190120
  5. OLMESARTAN [Concomitant]
     Active Substance: OLMESARTAN
  6. MEDOXOMIL/HCTZ [Concomitant]

REACTIONS (3)
  - Cellulitis [None]
  - Pain in extremity [None]
  - Gait inability [None]

NARRATIVE: CASE EVENT DATE: 20190120
